FAERS Safety Report 6143496-X (Version None)
Quarter: 2009Q2

REPORT INFORMATION
  Report Type: 
  Country: None (occurrence: None)
  Receive Date: 20090403
  Receipt Date: 20090325
  Transmission Date: 20091009
  Serious: Yes (Disabling, Other)
  Sender: FDA-Public Use
  Company Number: PHHY2009CN09766

PATIENT
  Age: 46 Year
  Sex: Female

DRUGS (4)
  1. OCTREOTIDE ACETATE [Suspect]
     Dosage: 0.3 MG/DAY
     Route: 042
     Dates: start: 20080101
  2. GABEXATE MESILATE [Concomitant]
     Dosage: 20 MG, UNK
  3. PAZUFLOXACIN [Concomitant]
     Dosage: 0.3/100ML BID
     Route: 042
  4. OMEPRAZOLE [Concomitant]
     Dosage: 20 MG, BID

REACTIONS (7)
  - BONE PAIN [None]
  - ERYTHEMA [None]
  - PAIN [None]
  - PHLEBITIS [None]
  - PRURITUS [None]
  - PSYCHOMOTOR SKILLS IMPAIRED [None]
  - SWELLING [None]
